FAERS Safety Report 13972769 (Version 3)
Quarter: 2017Q4

REPORT INFORMATION
  Report Type: Spontaneous
  Country: US (occurrence: US)
  Receive Date: 20170915
  Receipt Date: 20171215
  Transmission Date: 20180321
  Serious: Yes (Other)
  Sender: FDA-Public Use
  Company Number: US-GLAXOSMITHKLINE-US2017GSK141925

PATIENT
  Sex: Female

DRUGS (1)
  1. WELLBUTRIN SR [Suspect]
     Active Substance: BUPROPION HYDROCHLORIDE
     Indication: PRODUCT USED FOR UNKNOWN INDICATION

REACTIONS (10)
  - Hypersomnia [Unknown]
  - Perinatal depression [Recovering/Resolving]
  - Breast feeding [Unknown]
  - Emotional distress [Recovering/Resolving]
  - Crying [Recovering/Resolving]
  - Depressed mood [Recovering/Resolving]
  - Social avoidant behaviour [Recovering/Resolving]
  - Loss of personal independence in daily activities [Recovering/Resolving]
  - Live birth [Unknown]
  - Exposure during pregnancy [Unknown]

NARRATIVE: CASE EVENT DATE: 2014
